FAERS Safety Report 8014437 (Version 2)
Quarter: 2012Q4

REPORT INFORMATION
  Report Type: Spontaneous
  Country: US (occurrence: None)
  Receive Date: 20110614
  Receipt Date: 20120426
  Transmission Date: 20130627
  Serious: Yes (Hospitalization)
  Sender: FDA-Public Use
  Company Number: 2011GW000338

PATIENT
  Sex: Female

DRUGS (1)
  1. ZYCLARA [Suspect]
     Indication: ACTINIC KERATOSIS
     Dosage: 3.75 PCT, QD, TOP
     Route: 061

REACTIONS (2)
  - SUPRAVENTRICULAR TACHYCARDIA [None]
  - CONDUCTION DISORDER [None]
